FAERS Safety Report 7656415-1 (Version None)
Quarter: 2011Q3

REPORT INFORMATION
  Report Type: 
  Country: None (occurrence: None)
  Receive Date: 20110804
  Receipt Date: 20110728
  Transmission Date: 20111222
  Serious: Yes (Hospitalization)
  Sender: FDA-Public Use
  Company Number: FR-GLAXOSMITHKLINE-B0735518A

PATIENT
  Sex: Female
  Weight: 64.5 kg

DRUGS (12)
  1. LOVENOX [Concomitant]
     Indication: DEEP VEIN THROMBOSIS
     Route: 065
     Dates: start: 20110501, end: 20110501
  2. ACETAMINOPHEN [Concomitant]
     Indication: PAIN
     Dosage: 1G FOUR TIMES PER DAY
  3. G5% PLASMALYTE [Concomitant]
     Dosage: 1INJ AT NIGHT
     Route: 058
  4. FORLAX [Concomitant]
     Indication: CONSTIPATION
     Dosage: 1SAC IN THE MORNING
     Route: 048
  5. LASIX [Concomitant]
     Dosage: 80MG IN THE MORNING
  6. BISOPROLOL FUMARATE [Concomitant]
     Dosage: 1.25MG IN THE MORNING
  7. CLONAZEPAM [Concomitant]
     Dosage: 4DROP IN THE MORNING
     Route: 048
  8. AUGMENTIN '125' [Concomitant]
     Indication: LUNG DISORDER
     Route: 065
     Dates: start: 20110501
  9. PREVISCAN [Concomitant]
     Dosage: .5UNIT AT NIGHT
     Route: 048
  10. DILTIAZEM HCL [Concomitant]
     Dosage: 60MG TWICE PER DAY
  11. ARIXTRA [Suspect]
     Indication: DEEP VEIN THROMBOSIS
     Dosage: 7.5MG PER DAY
     Route: 058
     Dates: start: 20110516, end: 20110606
  12. ATHYMIL [Concomitant]
     Dosage: 10MG AT NIGHT

REACTIONS (2)
  - INCORRECT DRUG ADMINISTRATION DURATION [None]
  - SUBCUTANEOUS HAEMATOMA [None]
